FAERS Safety Report 16257129 (Version 1)
Quarter: 2019Q2

REPORT INFORMATION
  Report Type: Spontaneous
  Country: FR (occurrence: FR)
  Receive Date: 20190430
  Receipt Date: 20190430
  Transmission Date: 20190711
  Serious: Yes (Other)
  Sender: FDA-Public Use
  Company Number: FR-009507513-1904FRA012480

PATIENT
  Age: 26 Year
  Sex: Female
  Weight: 94 kg

DRUGS (4)
  1. VENTOLINE (ALBUTEROL SULFATE) [Concomitant]
     Active Substance: ALBUTEROL SULFATE
     Dosage: UNK
     Route: 055
     Dates: start: 20190220
  2. SINGULAIR [Suspect]
     Active Substance: MONTELUKAST SODIUM
     Indication: ASTHMA
     Dosage: 1 DOSAGE FORM, QD
     Route: 048
     Dates: start: 20190313, end: 20190314
  3. NASACORT [Suspect]
     Active Substance: TRIAMCINOLONE ACETONIDE
     Indication: RHINITIS
     Dosage: 2 SPRAYS PER NOSTRIL
     Route: 045
     Dates: start: 20190313, end: 20190315
  4. SYMBICORT [Suspect]
     Active Substance: BUDESONIDE\FORMOTEROL FUMARATE DIHYDRATE
     Indication: WHEEZING
     Dosage: 2 DOSAGE FORM, QD
     Route: 055
     Dates: start: 20190313, end: 20190314

REACTIONS (4)
  - Aggression [Recovered/Resolved]
  - Amnesia [Recovered/Resolved]
  - Behaviour disorder [Recovered/Resolved]
  - Balance disorder [Recovered/Resolved]

NARRATIVE: CASE EVENT DATE: 20190314
